FAERS Safety Report 7536428-0 (Version None)
Quarter: 2011Q2

REPORT INFORMATION
  Report Type: 
  Country: None (occurrence: None)
  Receive Date: 20110524
  Receipt Date: 20110304
  Transmission Date: 20111010
  Serious: Yes (Hospitalization)
  Sender: FDA-Public Use
  Company Number: 028832

PATIENT
  Sex: Female
  Weight: 63.5 kg

DRUGS (10)
  1. SERTRALINE HYDROCHLORIDE [Concomitant]
  2. CLINDAMYCIN [Suspect]
     Indication: TOOTH EXTRACTION
  3. METHOCARBAMOL [Concomitant]
  4. METHOTREXATE [Concomitant]
  5. MESALAMINE [Concomitant]
  6. CIMZIA [Suspect]
     Indication: CROHN'S DISEASE
     Dosage: (INDUCTION DOSE SUBCUTANEOUS) ; (2 SHOTS ; MG SUBCUTANEOUS)
     Route: 058
     Dates: start: 20100401
  7. CIMZIA [Suspect]
     Indication: CROHN'S DISEASE
     Dosage: (INDUCTION DOSE SUBCUTANEOUS) ; (2 SHOTS ; MG SUBCUTANEOUS)
     Route: 058
     Dates: start: 20100501
  8. OMEPRAZOLE [Concomitant]
  9. PREDNISONE [Concomitant]
  10. MELOXICAM [Concomitant]

REACTIONS (3)
  - CROHN'S DISEASE [None]
  - DYSPEPSIA [None]
  - TOOTH EXTRACTION [None]
